FAERS Safety Report 12401578 (Version 2)
Quarter: 2016Q2

REPORT INFORMATION
  Report Type: Spontaneous
  Country: US (occurrence: US)
  Receive Date: 20160525
  Receipt Date: 20160527
  Transmission Date: 20160815
  Serious: No
  Sender: FDA-Public Use
  Company Number: US-SA-2015SA170810

PATIENT
  Sex: Female

DRUGS (3)
  1. SOLOSTAR [Concomitant]
     Active Substance: DEVICE
  2. LANTUS SOLOSTAR [Suspect]
     Active Substance: INSULIN GLARGINE
     Indication: DIABETES MELLITUS
     Route: 065
  3. NPH INSULIN [Concomitant]
     Active Substance: INSULIN BEEF

REACTIONS (3)
  - Nausea [Unknown]
  - Blood pressure increased [Recovering/Resolving]
  - Vomiting [Recovering/Resolving]
